FAERS Safety Report 22239460 (Version 1)
Quarter: 2023Q2

REPORT INFORMATION
  Report Type: Spontaneous
  Country: US (occurrence: None)
  Receive Date: 20230419
  Receipt Date: 20230419
  Transmission Date: 20230721
  Serious: Yes (Hospitalization)
  Sender: FDA-Public Use
  Company Number: None

PATIENT
  Sex: Male

DRUGS (8)
  1. MYCOPHENOLIC ACID [Suspect]
     Active Substance: MYCOPHENOLIC ACID
     Indication: Lung transplant
     Dosage: FREQUENCY : TWICE A DAY;?
     Route: 048
     Dates: start: 20230210
  2. AZITHROMYCIN TAB [Concomitant]
  3. CEFPODOXIME TAB [Concomitant]
  4. EVEROLIMUS [Concomitant]
     Active Substance: EVEROLIMUS
  5. TACROLIMUS [Concomitant]
     Active Substance: TACROLIMUS
  6. TACROLIMUS [Concomitant]
     Active Substance: TACROLIMUS
  7. TAMIFLU CAP [Concomitant]
  8. TOBI NEB [Concomitant]

REACTIONS (1)
  - Pneumonia [None]

NARRATIVE: CASE EVENT DATE: 20230401
